FAERS Safety Report 18559082 (Version 1)
Quarter: 2020Q4

REPORT INFORMATION
  Report Type: Spontaneous
  Country: US (occurrence: US)
  Receive Date: 20201127
  Receipt Date: 20201127
  Transmission Date: 20210114
  Serious: No
  Sender: FDA-Public Use
  Company Number: None

PATIENT
  Age: 42 Year
  Sex: Male
  Weight: 92.25 kg

DRUGS (3)
  1. SINGULAIR [Concomitant]
     Active Substance: MONTELUKAST SODIUM
  2. ALBUTEROL SULFATE INHALATION AEROSOL 8.5G [Suspect]
     Active Substance: ALBUTEROL SULFATE
     Indication: ASTHMA
     Dosage: ?          QUANTITY:200 PUFF(S);?
     Route: 055
     Dates: start: 20200901, end: 20201123
  3. LORATIDINE [Concomitant]
     Active Substance: LORATADINE

REACTIONS (3)
  - Drug ineffective [None]
  - Device malfunction [None]
  - Device occlusion [None]

NARRATIVE: CASE EVENT DATE: 20201123
